FAERS Safety Report 20141527 (Version 3)
Quarter: 2025Q3

REPORT INFORMATION
  Report Type: Report from Study
  Country: EG (occurrence: EG)
  Receive Date: 20211202
  Receipt Date: 20250709
  Transmission Date: 20251021
  Serious: Yes (Other)
  Sender: NOVARTIS
  Company Number: EG-NOVARTISPH-NVSC2021EG273519

PATIENT
  Age: 34 Year
  Sex: Male

DRUGS (9)
  1. COSENTYX [Suspect]
     Active Substance: SECUKINUMAB
     Indication: Psoriasis
     Dosage: 2 DOSAGE FORM, QW (EVERY 5 DAYS FOR A MONTH THEN 2 PENS MONTHLY
     Route: 058
     Dates: start: 202008, end: 202110
  2. COSENTYX [Suspect]
     Active Substance: SECUKINUMAB
     Route: 058
     Dates: start: 20211117
  3. Gliptus plus [Concomitant]
     Indication: Diabetes mellitus
     Dosage: 1 DOSAGE FORM, BID (STARTED 1 OR 1.5 YEARS AGO)
     Route: 048
  4. Diamicron [Concomitant]
     Indication: Diabetes mellitus
     Dosage: 1.5 DOSAGE FORM, QD (STARTED 1 OR 1.5 YEARS AGO)
     Route: 048
  5. TRENTAL [Concomitant]
     Active Substance: PENTOXIFYLLINE
     Indication: Neuritis
     Dosage: 1 DOSAGE FORM, BID (STARTED 1 OR 1.5 YEARS AGO)
     Route: 048
  6. Omega 3 plus [Concomitant]
     Indication: Supplementation therapy
     Dosage: 1 DOSAGE FORM, TID (STARTED 1 OR 1.5 YEARS AGO)
     Route: 048
  7. Bon one [Concomitant]
     Indication: Renal disorder
     Dosage: 1 DOSAGE FORM, QD (STARTED 1 OR 1.5 YEARS AGO)
     Route: 048
  8. NEORAL [Concomitant]
     Active Substance: CYCLOSPORINE
     Indication: Psoriasis
     Dosage: 2 DOSAGE FORM, BID (FROM 2016 OR 2017)
     Route: 065
     Dates: end: 2020
  9. AMARYL [Concomitant]
     Active Substance: GLIMEPIRIDE
     Indication: Diabetes mellitus
     Route: 065

REACTIONS (15)
  - Psoriasis [Not Recovered/Not Resolved]
  - Therapeutic product effect delayed [Recovering/Resolving]
  - Suspected COVID-19 [Recovered/Resolved]
  - Ageusia [Recovered/Resolved]
  - Anosmia [Recovered/Resolved]
  - Pyrexia [Recovered/Resolved]
  - Arthritis [Recovered/Resolved]
  - Movement disorder [Recovered/Resolved]
  - Balance disorder [Recovered/Resolved]
  - Blood creatinine increased [Recovering/Resolving]
  - Glycosylated haemoglobin increased [Not Recovered/Not Resolved]
  - Renal impairment [Recovering/Resolving]
  - Blood glucose fluctuation [Not Recovered/Not Resolved]
  - Hepatic steatosis [Recovering/Resolving]
  - Hepatic enzyme increased [Recovering/Resolving]

NARRATIVE: CASE EVENT DATE: 20200801
